FAERS Safety Report 21185334 (Version 1)
Quarter: 2022Q3

REPORT INFORMATION
  Report Type: Report from Study
  Country: US (occurrence: US)
  Receive Date: 20220808
  Receipt Date: 20220808
  Transmission Date: 20221026
  Serious: Yes (Other)
  Sender: FDA-Public Use
  Company Number: US-INCYTE CORPORATION-2022IN007429

PATIENT

DRUGS (1)
  1. JAKAFI [Suspect]
     Active Substance: RUXOLITINIB
     Indication: Polycythaemia vera
     Dosage: 10 MILLIGRAM, BID, I TAKE TWO 5MG TABLETS IN THE MORNING AND TWO 5MG TABLETS IN THE EVENING
     Route: 048
     Dates: start: 20220711

REACTIONS (1)
  - Full blood count abnormal [Unknown]
